FAERS Safety Report 4727113-9 (Version None)
Quarter: 2005Q3

REPORT INFORMATION
  Report Type: 
  Country: None (occurrence: None)
  Receive Date: 20050726
  Receipt Date: 20050726
  Transmission Date: 20060218
  Serious: Yes (Hospitalization)
  Sender: FDA-Public Use
  Company Number: None

PATIENT
  Age: 57 Year
  Sex: Male
  Weight: 116.1 kg

DRUGS (18)
  1. DARVOCET-N 100 [Suspect]
  2. ENALAPRIL MALEATE [Concomitant]
  3. ACETAMINOPHEN W/ CODEINE NO. 3 [Concomitant]
  4. DOCUSATE NA [Concomitant]
  5. NITROGLYCERIN [Concomitant]
  6. CLONIDINE [Concomitant]
  7. ACETAMINOPHEN W/ CODEINE NO. 3 [Concomitant]
  8. FUROSEMIDE [Concomitant]
  9. DIPHENHYDRAMINE HCL [Concomitant]
  10. ACETAMINOPHEN (INPT-UD) [Concomitant]
  11. TERAZOSIN [Concomitant]
  12. SIMVASTATIN [Concomitant]
  13. OMEPRAZOLE [Concomitant]
  14. FUROSEMIDE [Concomitant]
  15. FLUNISOLIDE [Concomitant]
  16. CITALOPRAM [Concomitant]
  17. ATENOLOL [Concomitant]
  18. INSULIN REG HUMAN 100 U/ML INJ NOVOLIN R [Concomitant]

REACTIONS (1)
  - HALLUCINATION [None]
